FAERS Safety Report 13536705 (Version 1)
Quarter: 2017Q2

REPORT INFORMATION
  Report Type: Spontaneous
  Country: US (occurrence: US)
  Receive Date: 20170511
  Receipt Date: 20170511
  Transmission Date: 20170830
  Serious: Yes (Other)
  Sender: FDA-Public Use
  Company Number: US-FRESENIUS KABI-FK201703651

PATIENT
  Sex: Male

DRUGS (1)
  1. ANASTROZOLE (MANUFACTURER UNKNOWN) [Suspect]
     Active Substance: ANASTROZOLE
     Indication: OLIGOSPERMIA
     Route: 048

REACTIONS (2)
  - Off label use [Unknown]
  - Oestradiol increased [Unknown]
